FAERS Safety Report 10178747 (Version 2)
Quarter: 2014Q2

REPORT INFORMATION
  Report Type: Report from Study
  Country: NL (occurrence: NL)
  Receive Date: 20140519
  Receipt Date: 20140519
  Transmission Date: 20141212
  Serious: Yes (Death, Hospitalization)
  Sender: FDA-Public Use
  Company Number: NL-CELGENEUS-114-50794-14033154

PATIENT
  Age: 76 Year
  Sex: Male
  Weight: 79 kg

DRUGS (14)
  1. VIDAZA [Suspect]
     Indication: MYELODYSPLASTIC SYNDROME
     Dosage: 150 MILLIGRAM
     Route: 058
     Dates: start: 20140304, end: 20140310
  2. METFORMIN [Concomitant]
     Indication: DIABETES MELLITUS
     Dosage: 500 MILLIGRAM
     Route: 048
     Dates: start: 20120220
  3. METOPROLOL [Concomitant]
     Indication: ATRIAL FIBRILLATION
     Dosage: 25 MILLIGRAM
     Route: 048
     Dates: start: 20140219, end: 20140330
  4. IRBESARTAN [Concomitant]
     Indication: HYPERTENSION
     Dosage: 150/125MG
     Route: 048
     Dates: start: 20130620, end: 20140315
  5. ONDANSETRON [Concomitant]
     Indication: PROPHYLAXIS
     Dosage: 16 MILLIGRAM
     Route: 048
     Dates: start: 20140227
  6. FRUSEMIDE [Concomitant]
     Indication: DYSPNOEA
     Dosage: 40 MILLIGRAM
     Route: 048
     Dates: start: 20140310, end: 20140315
  7. PLATELET [Concomitant]
     Indication: PRODUCT USED FOR UNKNOWN INDICATION
     Route: 065
     Dates: start: 20140306, end: 20140306
  8. RED BLOOD CELLS [Concomitant]
     Indication: PRODUCT USED FOR UNKNOWN INDICATION
     Route: 065
     Dates: start: 20140311, end: 20140311
  9. HYDROCHLOORTHIAZIDE [Concomitant]
     Indication: HYPERTENSION
     Dosage: 150/125MG
     Route: 048
     Dates: start: 20130620
  10. TRANEXAMINEZUUR [Concomitant]
     Indication: PROPHYLAXIS
     Dosage: 1500 MILLIGRAM
     Route: 048
     Dates: start: 20140318
  11. ESOMEPRAZOLE [Concomitant]
     Indication: PROPHYLAXIS
     Dosage: 40 MILLIGRAM
     Route: 048
     Dates: start: 20140321
  12. HYDROCORTISON [Concomitant]
     Indication: PNEUMONIA
     Route: 048
     Dates: start: 20140402, end: 20140402
  13. CIPROFLOXACINE [Concomitant]
     Indication: PNEUMONIA
     Route: 048
     Dates: start: 20140402, end: 20140402
  14. MORFINE [Concomitant]
     Indication: PAIN
     Route: 041
     Dates: start: 20140404, end: 20140404

REACTIONS (5)
  - Pulmonary sepsis [Fatal]
  - Adrenal insufficiency [Recovered/Resolved]
  - Febrile neutropenia [Recovered/Resolved]
  - Dyspnoea [Not Recovered/Not Resolved]
  - Injection site erythema [Recovered/Resolved with Sequelae]
